FAERS Safety Report 21615829 (Version 1)
Quarter: 2022Q4

REPORT INFORMATION
  Report Type: Spontaneous
  Country: FR (occurrence: FR)
  Receive Date: 20221118
  Receipt Date: 20221118
  Transmission Date: 20230113
  Serious: Yes (Hospitalization)
  Sender: FDA-Public Use
  Company Number: None

PATIENT
  Age: 66 Year
  Sex: Male
  Weight: 103 kg

DRUGS (2)
  1. GLIMEPIRIDE [Interacting]
     Active Substance: GLIMEPIRIDE
     Indication: Type 2 diabetes mellitus
     Dosage: UNIT DOSE : 3 MG   , FREQUENCY TIME : 1 DAY   , THERAPY START DATE : ASKU
     Dates: end: 20220906
  2. DAPAGLIFLOZIN [Interacting]
     Active Substance: DAPAGLIFLOZIN
     Indication: Type 2 diabetes mellitus
     Dosage: FORM STRENGTH : 10 MG ,UNIT DOSE : 10 MG   , FREQUENCY TIME :1 DAY , THERAPY START DATE : ASKU
     Dates: end: 20220906

REACTIONS (2)
  - Hypoglycaemia [Recovered/Resolved]
  - Drug interaction [Recovered/Resolved]

NARRATIVE: CASE EVENT DATE: 20220906
